FAERS Safety Report 6754449-2 (Version None)
Quarter: 2010Q2

REPORT INFORMATION
  Report Type: 
  Country: None (occurrence: None)
  Receive Date: 20100603
  Receipt Date: 20100525
  Transmission Date: 20101027
  Serious: Yes (Other)
  Sender: FDA-Public Use
  Company Number: PHHY2010US34063

PATIENT
  Sex: Male

DRUGS (3)
  1. EXTAVIA [Suspect]
     Indication: MULTIPLE SCLEROSIS
     Dosage: 0.25 MG, QOD
     Route: 058
     Dates: start: 20100202
  2. BACLOFEN [Concomitant]
     Dosage: 20 MG, TID
  3. GEODON [Concomitant]
     Dosage: 40 MG, QD

REACTIONS (3)
  - DIZZINESS [None]
  - MEMORY IMPAIRMENT [None]
  - PARTIAL SEIZURES [None]
